FAERS Safety Report 14925938 (Version 1)
Quarter: 2018Q2

REPORT INFORMATION
  Report Type: Spontaneous
  Country: US (occurrence: US)
  Receive Date: 20180522
  Receipt Date: 20180522
  Transmission Date: 20180711
  Serious: No
  Sender: FDA-Public Use
  Company Number: US-BIOGEN-2010BI040180

PATIENT
  Sex: Female

DRUGS (3)
  1. TYSABRI [Suspect]
     Active Substance: NATALIZUMAB
     Dosage: INFUSED OVER 1 HOUR
     Route: 042
     Dates: end: 2011
  2. TYSABRI [Suspect]
     Active Substance: NATALIZUMAB
     Indication: MULTIPLE SCLEROSIS
     Dosage: INFUSED OVER 1 HOUR
     Route: 042
     Dates: start: 20100226
  3. AMPYRA [Concomitant]
     Active Substance: DALFAMPRIDINE
     Indication: PRODUCT USED FOR UNKNOWN INDICATION
     Route: 065

REACTIONS (27)
  - Sensory disturbance [Unknown]
  - Hypoaesthesia [Recovered/Resolved]
  - Coordination abnormal [Unknown]
  - Fall [Recovered/Resolved]
  - Balance disorder [Unknown]
  - Gastrointestinal viral infection [Recovered/Resolved]
  - Migraine [Unknown]
  - Weight increased [Recovered/Resolved]
  - Vision blurred [Recovered/Resolved]
  - Drug ineffective [Not Recovered/Not Resolved]
  - Pain [Unknown]
  - Feeling abnormal [Unknown]
  - Central nervous system lesion [Unknown]
  - Claustrophobia [Unknown]
  - Gait disturbance [Unknown]
  - Myalgia [Recovered/Resolved]
  - Headache [Recovered/Resolved]
  - Ear discomfort [Unknown]
  - Nephrolithiasis [Recovered/Resolved]
  - Hypersomnia [Unknown]
  - Burning sensation [Recovered/Resolved]
  - Aphasia [Unknown]
  - Fear [Unknown]
  - Multiple sclerosis [Unknown]
  - Visual impairment [Unknown]
  - Drug dose omission [Unknown]
  - Fatigue [Unknown]

NARRATIVE: CASE EVENT DATE: 2010
